FAERS Safety Report 15856049 (Version 1)
Quarter: 2019Q1

REPORT INFORMATION
  Report Type: Spontaneous
  Country: US (occurrence: US)
  Receive Date: 20190123
  Receipt Date: 20190123
  Transmission Date: 20190417
  Serious: No
  Sender: FDA-Public Use
  Company Number: US-ELI_LILLY_AND_COMPANY-US201901007550

PATIENT
  Sex: Male

DRUGS (1)
  1. TRULICITY [Suspect]
     Active Substance: DULAGLUTIDE
     Indication: DIABETES MELLITUS
     Dosage: 0.75 MG, UNKNOWN
     Route: 065
     Dates: start: 2017

REACTIONS (6)
  - Upper limb fracture [Not Recovered/Not Resolved]
  - Memory impairment [Unknown]
  - Spinal fracture [Not Recovered/Not Resolved]
  - Weight decreased [Recovered/Resolved]
  - Injection site pain [Unknown]
  - Arthritis [Not Recovered/Not Resolved]
